FAERS Safety Report 10786813 (Version 1)
Quarter: 2015Q1

REPORT INFORMATION
  Report Type: Spontaneous
  Country: JP (occurrence: JP)
  Receive Date: 20150211
  Receipt Date: 20150211
  Transmission Date: 20150721
  Serious: Yes (Other)
  Sender: FDA-Public Use
  Company Number: JP-PFIZER INC-2015003243

PATIENT
  Age: 85 Year
  Sex: Female

DRUGS (2)
  1. CRAVIT [Concomitant]
     Active Substance: LEVOFLOXACIN
     Indication: PNEUMONIA
  2. UNASYN [Suspect]
     Active Substance: AMPICILLIN SODIUM\SULBACTAM SODIUM
     Indication: PNEUMONIA
     Dosage: UNK

REACTIONS (3)
  - Conductive deafness [Unknown]
  - Tinnitus [Unknown]
  - Eustachian tube dysfunction [Unknown]
